FAERS Safety Report 11838270 (Version 2)
Quarter: 2016Q1

REPORT INFORMATION
  Report Type: Spontaneous
  Country: DE (occurrence: DE)
  Receive Date: 20151215
  Receipt Date: 20160127
  Transmission Date: 20160525
  Serious: Yes (Other)
  Sender: FDA-Public Use
  Company Number: DE-MYLANLABS-2015M1043662

PATIENT

DRUGS (9)
  1. METOPROLOL SUCCINATE. [Concomitant]
     Active Substance: METOPROLOL SUCCINATE
     Indication: HYPERTENSION
     Dosage: 47.5 MG, QD (AT 12^O CLOCK MID-DAY)
     Route: 048
  2. VALSARTAN DURA 80 MG FILMTABLETTEN [Suspect]
     Active Substance: VALSARTAN
     Dosage: 160 MG, QD (ONCE A DAY 1 TABLET)
     Route: 048
  3. MARCUMAR [Concomitant]
     Active Substance: PHENPROCOUMON
     Indication: PROPHYLAXIS
     Dosage: 3 MG, UNK
     Route: 048
  4. L-THYROX [Concomitant]
     Active Substance: LEVOTHYROXINE SODIUM
     Indication: THYROID OPERATION
     Dosage: 125 ?G, QD
  5. VALSARTAN DURA 80 MG FILMTABLETTEN [Suspect]
     Active Substance: VALSARTAN
     Dosage: 2 DF, QD (160MG/D)
     Route: 048
  6. DOXAZOSIN [Suspect]
     Active Substance: DOXAZOSIN\DOXAZOSIN MESYLATE
     Indication: HYPERTENSION
     Dosage: 1 DF, QD (INTAKE AT ABOUT 5 P.M)
     Route: 048
     Dates: end: 201509
  7. VALSARTAN DURA 80 MG FILMTABLETTEN [Suspect]
     Active Substance: VALSARTAN
     Indication: HYPERTENSION
     Dosage: 1 DF, QD (80MG/D)
     Route: 048
     Dates: start: 201509
  8. LERCANIDIPINUM [Concomitant]
     Indication: HYPERTENSION
     Dosage: UNK
     Route: 048
     Dates: end: 2015
  9. LERCANIDIPINUM [Concomitant]
     Dosage: 20 MG, QD (8 A.M.))
     Route: 048
     Dates: start: 2015

REACTIONS (7)
  - Restlessness [Not Recovered/Not Resolved]
  - Dizziness [Not Recovered/Not Resolved]
  - Drug ineffective [Not Recovered/Not Resolved]
  - Insomnia [Not Recovered/Not Resolved]
  - Nervousness [Not Recovered/Not Resolved]
  - Blood pressure increased [Not Recovered/Not Resolved]
  - Headache [Not Recovered/Not Resolved]

NARRATIVE: CASE EVENT DATE: 2014
